FAERS Safety Report 5565642-9 (Version None)
Quarter: 2007Q4

REPORT INFORMATION
  Report Type: 
  Country: None (occurrence: None)
  Receive Date: 20071218
  Receipt Date: 20071210
  Transmission Date: 20080405
  Serious: Yes (Life-Threatening)
  Sender: FDA-Public Use
  Company Number: JP-PFIZER INC-2007104330

PATIENT
  Age: 55 Year
  Sex: Male

DRUGS (2)
  1. UNASYN [Suspect]
     Indication: INFECTION PROPHYLAXIS
     Dosage: DAILY DOSE:1.5GRAM
     Route: 042
     Dates: start: 20071204, end: 20071204
  2. ANAESTHETICS [Concomitant]
     Dates: start: 20071204, end: 20071204

REACTIONS (2)
  - CARDIAC ARREST [None]
  - SHOCK [None]
